FAERS Safety Report 8013827-4 (Version None)
Quarter: 2011Q4

REPORT INFORMATION
  Report Type: 
  Country: None (occurrence: None)
  Receive Date: 20111229
  Receipt Date: 20111220
  Transmission Date: 20120403
  Serious: Yes (Hospitalization, Other)
  Sender: FDA-Public Use
  Company Number: PHHY2011CA110906

PATIENT
  Sex: Female

DRUGS (1)
  1. AFINITOR [Suspect]
     Indication: RENAL CELL CARCINOMA
     Dosage: 10 MG, DAILY
     Route: 048
     Dates: start: 20111021, end: 20111122

REACTIONS (3)
  - GASTROINTESTINAL HAEMORRHAGE [None]
  - NEOPLASM MALIGNANT [None]
  - NEOPLASM PROGRESSION [None]
